FAERS Safety Report 9320196 (Version 1)
Quarter: 2013Q2

REPORT INFORMATION
  Report Type: Spontaneous
  Country: US (occurrence: US)
  Receive Date: 20130530
  Receipt Date: 20130530
  Transmission Date: 20140414
  Serious: No
  Sender: FDA-Public Use
  Company Number: US-009507513-1301USA013180

PATIENT
  Age: 22 Year
  Sex: Female
  Weight: 90.25 kg

DRUGS (1)
  1. IMPLANON [Suspect]
     Dosage: UNK
     Route: 059
     Dates: start: 2012

REACTIONS (2)
  - Device breakage [Recovered/Resolved]
  - No adverse event [Unknown]
